FAERS Safety Report 6527047-3 (Version None)
Quarter: 2009Q4

REPORT INFORMATION
  Report Type: 
  Country: None (occurrence: None)
  Receive Date: 20091229
  Receipt Date: 20091217
  Transmission Date: 20100525
  Serious: Yes (Other)
  Sender: FDA-Public Use
  Company Number: 003512

PATIENT
  Age: 32 Year
  Sex: Male

DRUGS (3)
  1. CO-CODAMOL (CO-CODAMOL) [Suspect]
  2. METHADONE (METHADONE) [Suspect]
  3. CLOZARIL [Suspect]
     Indication: SCHIZOPHRENIA
     Dates: start: 20080104

REACTIONS (3)
  - BALANCE DISORDER [None]
  - FALL [None]
  - INCORRECT DOSE ADMINISTERED [None]
